FAERS Safety Report 19416437 (Version 1)
Quarter: 2021Q2

REPORT INFORMATION
  Report Type: Spontaneous
  Country: US (occurrence: US)
  Receive Date: 20210614
  Receipt Date: 20210614
  Transmission Date: 20210717
  Serious: No
  Sender: FDA-Public Use
  Company Number: US-PFIZER INC-2021270782

PATIENT
  Age: 36 Year
  Sex: Female
  Weight: 127 kg

DRUGS (1)
  1. TRASTUZUMAB. [Suspect]
     Active Substance: TRASTUZUMAB
     Dosage: 1 CYCLE
     Dates: start: 20190718, end: 20190719

REACTIONS (1)
  - Infusion related reaction [Unknown]
